FAERS Safety Report 21652409 (Version 1)
Quarter: 2022Q4

REPORT INFORMATION
  Report Type: Spontaneous
  Country: US (occurrence: None)
  Receive Date: 20221123
  Receipt Date: 20221123
  Transmission Date: 20230112
  Serious: Yes (Death)
  Sender: FDA-Public Use
  Company Number: None

PATIENT
  Age: 62 Year
  Sex: Male

DRUGS (1)
  1. BOTOX [Suspect]
     Active Substance: ONABOTULINUMTOXINA
     Indication: Blepharospasm
     Dosage: 200 UNITS OTHER INTRAMUSCULAR
     Route: 030
     Dates: start: 202111, end: 202209

REACTIONS (1)
  - Death [None]

NARRATIVE: CASE EVENT DATE: 20220901
